FAERS Safety Report 20107437 (Version 1)
Quarter: 2021Q4

REPORT INFORMATION
  Report Type: Spontaneous
  Country: None (occurrence: US)
  Receive Date: 20211124
  Receipt Date: 20211124
  Transmission Date: 20220303
  Serious: No
  Sender: FDA-Public Use
  Company Number: US-AKCEA THERAPEUTICS, INC.-2021IS001567

PATIENT
  Age: 83 Year
  Sex: Female

DRUGS (2)
  1. TEGSEDI [Suspect]
     Active Substance: INOTERSEN SODIUM
     Indication: Hereditary neuropathic amyloidosis
     Route: 058
     Dates: start: 20190803
  2. DEVICE [Suspect]
     Active Substance: DEVICE

REACTIONS (9)
  - Blood creatinine decreased [Unknown]
  - Urine protein/creatinine ratio increased [Unknown]
  - Urine abnormality [Unknown]
  - Urine leukocyte esterase positive [Unknown]
  - Creatinine urine abnormal [Unknown]
  - Protein urine present [Unknown]
  - White blood cells urine positive [Unknown]
  - Bacterial test positive [Unknown]
  - Red blood cells urine positive [Unknown]

NARRATIVE: CASE EVENT DATE: 20210728
